FAERS Safety Report 6049486-X (Version None)
Quarter: 2009Q1

REPORT INFORMATION
  Report Type: 
  Country: None (occurrence: None)
  Receive Date: 20090121
  Receipt Date: 20090107
  Transmission Date: 20090719
  Serious: Yes (Other)
  Sender: FDA-Public Use
  Company Number: DE-1168089

PATIENT
  Sex: Female

DRUGS (1)
  1. FLUORESCITE          (FLUORESCEIN SODIUM) 10 % INJECTION LOT# IM0818B [Suspect]
     Indication: ANGIOGRAM RETINA
     Dosage: 5 ML
     Route: 040

REACTIONS (5)
  - BLOOD PRESSURE FLUCTUATION [None]
  - BLOOD PRESSURE INCREASED [None]
  - DIZZINESS [None]
  - RESTLESSNESS [None]
  - TREMOR [None]
